FAERS Safety Report 12389258 (Version 1)
Quarter: 2016Q2

REPORT INFORMATION
  Report Type: Spontaneous
  Country: JP (occurrence: JP)
  Receive Date: 20160520
  Receipt Date: 20160520
  Transmission Date: 20160815
  Serious: Yes (Other)
  Sender: FDA-Public Use
  Company Number: JP-JNJFOC-20160518566

PATIENT
  Age: 71 Year
  Sex: Male
  Weight: 55 kg

DRUGS (5)
  1. ALTAT [Concomitant]
     Dosage: START DATE: BEFORE THE ADMINISTRATION OF CANAGLIFLOZIN
     Route: 048
  2. TRAZENTA [Concomitant]
     Active Substance: LINAGLIPTIN
     Indication: TYPE 2 DIABETES MELLITUS
     Dosage: START DATE: THREE MONTHS OR BEFORE THE ADMINISTRATION OF CANAGLIFLOZIN
     Route: 048
  3. CANAGLU [Suspect]
     Active Substance: CANAGLIFLOZIN
     Indication: TYPE 2 DIABETES MELLITUS
     Route: 048
     Dates: start: 20141030, end: 20150929
  4. DEPAS [Concomitant]
     Active Substance: ETIZOLAM
     Dosage: START DATE: BEFORE THE ADMINISTRATION OF CANAGLIFLOZIN
     Route: 048
  5. TRESIBA [Concomitant]
     Active Substance: INSULIN DEGLUDEC
     Indication: TYPE 2 DIABETES MELLITUS
     Dosage: START DATE: THREE MONTHS OR BEFORE THE ADMINISTRATION OF CANAGLIFLOZIN
     Route: 051

REACTIONS (1)
  - Mania [Unknown]
